FAERS Safety Report 8666166 (Version 2)
Quarter: 2013Q4

REPORT INFORMATION
  Report Type: Spontaneous
  Country: AU (occurrence: AU)
  Receive Date: 20120716
  Receipt Date: 20131115
  Transmission Date: 20140711
  Serious: Yes (Hospitalization, Other)
  Sender: FDA-Public Use
  Company Number: AU-ASTRAZENECA-2010SE13016

PATIENT
  Age: 63 Year
  Sex: Female

DRUGS (5)
  1. ARIMIDEX [Suspect]
     Indication: BREAST CANCER
     Route: 048
     Dates: start: 200911
  2. SOTALOL [Concomitant]
  3. PLAVIX [Concomitant]
  4. ASPIRIN [Concomitant]
  5. BLOOD PRESSURE MEDICATIONS [Concomitant]

REACTIONS (8)
  - Palpitations [Recovering/Resolving]
  - Haemorrhage [Recovering/Resolving]
  - Feeling abnormal [Unknown]
  - Cyst [Unknown]
  - Fall [Unknown]
  - Wrist fracture [Recovering/Resolving]
  - Nausea [Not Recovered/Not Resolved]
  - Hot flush [Unknown]
